FAERS Safety Report 7490979-6 (Version None)
Quarter: 2011Q2

REPORT INFORMATION
  Report Type: 
  Country: None (occurrence: None)
  Receive Date: 20110519
  Receipt Date: 20110510
  Transmission Date: 20111010
  Serious: Yes (Other)
  Sender: FDA-Public Use
  Company Number: ES-ASTRAZENECA-2011SE28418

PATIENT
  Age: 78 Year
  Sex: Female

DRUGS (1)
  1. ATENOLOL [Suspect]
     Indication: MYOCARDIAL ISCHAEMIA
     Route: 048
     Dates: start: 19981203, end: 20101103

REACTIONS (1)
  - BRADYCARDIA [None]
